FAERS Safety Report 5165080-7 (Version None)
Quarter: 2006Q4

REPORT INFORMATION
  Report Type: 
  Country: None (occurrence: None)
  Receive Date: 20061124
  Receipt Date: 20061110
  Transmission Date: 20070319
  Serious: Yes (Death, Other)
  Sender: FDA-Public Use
  Company Number: 2006130051

PATIENT
  Age: 54 Year
  Sex: Female

DRUGS (4)
  1. LYRICA [Suspect]
     Indication: MUSCLE SPASTICITY
     Dates: start: 20061016
  2. LYRICA [Suspect]
     Indication: PAIN
     Dates: start: 20061016
  3. MIOREL         (THIOCOLCHICOSIDE) [Concomitant]
  4. INTERFERON (INTERFERON) [Concomitant]

REACTIONS (4)
  - DIZZINESS [None]
  - PULMONARY OEDEMA [None]
  - SOMNOLENCE [None]
  - SPUTUM ABNORMAL [None]
